FAERS Safety Report 16579568 (Version 1)
Quarter: 2019Q3

REPORT INFORMATION
  Report Type: Spontaneous
  Country: US (occurrence: US)
  Receive Date: 20190716
  Receipt Date: 20190716
  Transmission Date: 20191004
  Serious: No
  Sender: FDA-Public Use
  Company Number: US-TRIS PHARMA, INC.-19US000053

PATIENT

DRUGS (3)
  1. DYANAVEL XR [Suspect]
     Active Substance: AMPHETAMINE
     Indication: ATTENTION DEFICIT/HYPERACTIVITY DISORDER
     Dosage: 1 MILLILITER (FOR 1 WEEK)
     Route: 048
     Dates: start: 20190509, end: 20190515
  2. DYANAVEL XR [Suspect]
     Active Substance: AMPHETAMINE
     Dosage: 2 MILLILITER
     Route: 048
     Dates: start: 20190516, end: 2019
  3. DYANAVEL XR [Suspect]
     Active Substance: AMPHETAMINE
     Dosage: 3 MILLILITER
     Route: 048
     Dates: start: 2019

REACTIONS (5)
  - Mania [Recovered/Resolved]
  - Screaming [Recovered/Resolved]
  - Antisocial behaviour [Recovered/Resolved]
  - Irritability [Recovered/Resolved]
  - Crying [Recovered/Resolved]

NARRATIVE: CASE EVENT DATE: 20190617
